FAERS Safety Report 8053673-9 (Version None)
Quarter: 2012Q1

REPORT INFORMATION
  Report Type: 
  Country: None (occurrence: None)
  Receive Date: 20120118
  Receipt Date: 20120110
  Transmission Date: 20120608
  Serious: Yes (Other)
  Sender: FDA-Public Use
  Company Number: PHHY2012JP003091

PATIENT
  Age: 54 Year
  Sex: Male

DRUGS (4)
  1. NICARDIPINE HYDROCHLORIDE [Suspect]
     Indication: HYPERTENSION
     Route: 042
     Dates: start: 20070408
  2. DIAZEPAM [Suspect]
     Route: 042
  3. XYLOCAINE [Suspect]
  4. PENTAZOCINE LACTATE [Suspect]
     Indication: ANALGESIC THERAPY
     Dosage: 15 MG, UNK
     Route: 042
     Dates: start: 20070408

REACTIONS (1)
  - ANAPHYLACTIC SHOCK [None]
